FAERS Safety Report 20490557 (Version 1)
Quarter: 2022Q1

REPORT INFORMATION
  Report Type: Spontaneous
  Country: US (occurrence: None)
  Receive Date: 20220218
  Receipt Date: 20220218
  Transmission Date: 20220424
  Serious: Yes (Disabling, Other)
  Sender: FDA-Public Use
  Company Number: None

PATIENT
  Age: 46 Year
  Sex: Female
  Weight: 66.68 kg

DRUGS (7)
  1. METFORMIN [Suspect]
     Active Substance: METFORMIN HYDROCHLORIDE
     Indication: Type 2 diabetes mellitus
     Dosage: OTHER QUANTITY : 60 PILLS;?FREQUENCY : TWICE A DAY;?
     Route: 048
     Dates: start: 20161120
  2. GABAPENTIN [Concomitant]
     Active Substance: GABAPENTIN
  3. IBUPROFEN [Concomitant]
     Active Substance: IBUPROFEN
  4. LISINOPRIL [Concomitant]
     Active Substance: LISINOPRIL
  5. DULOXETINE [Concomitant]
     Active Substance: DULOXETINE
  6. PRAVASTATIN [Concomitant]
     Active Substance: PRAVASTATIN
  7. DICLOFENAC SODIUM [Concomitant]
     Active Substance: DICLOFENAC SODIUM

REACTIONS (7)
  - Haemorrhage [None]
  - Nervousness [None]
  - Dizziness [None]
  - Nausea [None]
  - Decreased appetite [None]
  - Fatigue [None]
  - Renal disorder [None]

NARRATIVE: CASE EVENT DATE: 20161120
